FAERS Safety Report 4613714-5 (Version None)
Quarter: 2005Q1

REPORT INFORMATION
  Report Type: 
  Country: None (occurrence: None)
  Receive Date: 20050321
  Receipt Date: 20050307
  Transmission Date: 20050727
  Serious: Yes (Death, Life-Threatening, Hospitalization)
  Sender: FDA-Public Use
  Company Number: US-JNJFOC-20050301745

PATIENT
  Sex: Male

DRUGS (10)
  1. ABCIXIMAB [Suspect]
     Route: 042
  2. ABCIXIMAB [Suspect]
     Route: 042
  3. ASPIRIN [Concomitant]
     Route: 049
  4. COUMADIN [Concomitant]
     Route: 049
  5. LAMICTAL [Concomitant]
     Route: 049
  6. NEURONTIN [Concomitant]
     Route: 049
  7. ZETIA [Concomitant]
     Route: 042
  8. ZOLOFT [Concomitant]
     Route: 049
  9. HYDROMORPHONE [Concomitant]
     Route: 042
  10. CRESTOR [Concomitant]
     Route: 049

REACTIONS (3)
  - BRAIN HERNIATION [None]
  - DEPRESSED LEVEL OF CONSCIOUSNESS [None]
  - HAEMORRHAGIC TRANSFORMATION STROKE [None]
